FAERS Safety Report 24880090 (Version 1)
Quarter: 2025Q1

REPORT INFORMATION
  Report Type: Spontaneous
  Country: FR (occurrence: FR)
  Receive Date: 20250123
  Receipt Date: 20250123
  Transmission Date: 20250409
  Serious: Yes (Hospitalization)
  Sender: GUERBET
  Company Number: None

PATIENT
  Age: 38 Year
  Sex: Female
  Weight: 61 kg

DRUGS (1)
  1. DOTAREM [Suspect]
     Active Substance: GADOTERATE MEGLUMINE
     Indication: Magnetic resonance imaging
     Route: 042
     Dates: start: 20240829, end: 20240829

REACTIONS (3)
  - Rash [Recovered/Resolved]
  - Arthralgia [Recovered/Resolved]
  - Eosinophilic cellulitis [Recovered/Resolved]

NARRATIVE: CASE EVENT DATE: 20240830
